FAERS Safety Report 5943867-8 (Version None)
Quarter: 2008Q4

REPORT INFORMATION
  Report Type: 
  Country: None (occurrence: None)
  Receive Date: 20081106
  Receipt Date: 20081103
  Transmission Date: 20090506
  Serious: Yes (Hospitalization, Other)
  Sender: FDA-Public Use
  Company Number: AU-AVENTIS-200819884GDDC

PATIENT
  Age: 13 Year
  Sex: Female

DRUGS (4)
  1. LANTUS [Suspect]
     Route: 058
     Dates: start: 20080506
  2. LANTUS [Suspect]
     Route: 058
     Dates: start: 20080506
  3. NOVORAPID [Concomitant]
     Route: 058
     Dates: start: 20031103
  4. NOVORAPID [Concomitant]
     Route: 058
     Dates: start: 20031103

REACTIONS (2)
  - DIABETIC KETOACIDOSIS [None]
  - PRODUCT QUALITY ISSUE [None]
